FAERS Safety Report 12599401 (Version 3)
Quarter: 2016Q3

REPORT INFORMATION
  Report Type: Spontaneous
  Country: US (occurrence: US)
  Receive Date: 20160727
  Receipt Date: 20160927
  Transmission Date: 20161109
  Serious: Yes (Other)
  Sender: FDA-Public Use
  Company Number: US-PFIZER INC-2016360974

PATIENT
  Sex: Female

DRUGS (1)
  1. EFFEXOR XR [Suspect]
     Active Substance: VENLAFAXINE HYDROCHLORIDE
     Indication: DEPRESSION
     Dosage: 225 MG, DAILY (150 MG EFFEXOR XR ONCE DAILY, 75 MG EFFEXOR XR ONCE DAILY)

REACTIONS (7)
  - Suicidal ideation [Unknown]
  - Depressed mood [Unknown]
  - Chest injury [Unknown]
  - Fall [Unknown]
  - Head injury [Unknown]
  - Joint injury [Unknown]
  - Balance disorder [Unknown]

NARRATIVE: CASE EVENT DATE: 20160707
